FAERS Safety Report 5574459-0 (Version None)
Quarter: 2007Q4

REPORT INFORMATION
  Report Type: 
  Country: None (occurrence: None)
  Receive Date: 20071226
  Receipt Date: 20071226
  Transmission Date: 20080405
  Serious: Yes (Hospitalization)
  Sender: FDA-Public Use
  Company Number: None

PATIENT
  Sex: Female
  Weight: 108.8633 kg

DRUGS (4)
  1. QUINAPRIL HCL [Suspect]
     Indication: DIABETIC NEPHROPATHY
     Dosage: 10 MG  1 TABLET PER DAY  PO
     Route: 048
     Dates: start: 20020501, end: 20071221
  2. QUINAPRIL HCL [Suspect]
     Indication: PROPHYLAXIS
     Dosage: 10 MG  1 TABLET PER DAY  PO
     Route: 048
     Dates: start: 20020501, end: 20071221
  3. GLUCOPHAGE [Concomitant]
  4. DESOGEN [Concomitant]

REACTIONS (2)
  - ANGIOEDEMA [None]
  - DRUG HYPERSENSITIVITY [None]
